FAERS Safety Report 25431484 (Version 1)
Quarter: 2025Q2

REPORT INFORMATION
  Report Type: Other
  Country: ES (occurrence: ES)
  Receive Date: 20250613
  Receipt Date: 20250613
  Transmission Date: 20250717
  Serious: Yes (Disabling)
  Sender: Integrated Therapeutic Solutions
  Company Number: ES-Integrated Therapeutic Solutions Inc.-2178437

PATIENT
  Age: 37 Year
  Sex: Female

DRUGS (1)
  1. PYLERA [Suspect]
     Active Substance: BISMUTH SUBCITRATE POTASSIUM\METRONIDAZOLE\TETRACYCLINE HYDROCHLORIDE
     Indication: Helicobacter test positive
     Dates: start: 20250122, end: 20250201

REACTIONS (9)
  - Paraesthesia [Unknown]
  - Chest pain [Unknown]
  - Feeding intolerance [Unknown]
  - Amenorrhoea [Unknown]
  - Weight decreased [Unknown]
  - Condition aggravated [Unknown]
  - Gastrooesophageal reflux disease [Unknown]
  - Fatigue [Unknown]
  - Anxiety [Unknown]

NARRATIVE: CASE EVENT DATE: 20250122
